FAERS Safety Report 5991672-9 (Version None)
Quarter: 2008Q4

REPORT INFORMATION
  Report Type: 
  Country: None (occurrence: None)
  Receive Date: 20081202
  Receipt Date: 20071018
  Transmission Date: 20090506
  Serious: Yes (Disabling)
  Sender: FDA-Public Use
  Company Number: WAES 0708USA00143

PATIENT
  Age: 70 Year
  Sex: Female
  Weight: 81.6475 kg

DRUGS (3)
  1. FOSAMAX [Suspect]
     Dosage: 70 MG/WKY/PO
     Route: 048
     Dates: start: 20031101, end: 20060517
  2. ATENOLOL [Concomitant]
  3. VERAPAMIL [Concomitant]

REACTIONS (5)
  - ADVERSE EVENT [None]
  - BRONCHITIS [None]
  - NEPHROLITHIASIS [None]
  - OSTEONECROSIS [None]
  - SKIN CANCER [None]
